FAERS Safety Report 7819616-5 (Version None)
Quarter: 2011Q4

REPORT INFORMATION
  Report Type: 
  Country: None (occurrence: None)
  Receive Date: 20111018
  Receipt Date: 20111018
  Transmission Date: 20120403
  Serious: Yes (Hospitalization)
  Sender: FDA-Public Use
  Company Number: None

PATIENT
  Age: 50 Year
  Sex: Male
  Weight: 52.163 kg

DRUGS (1)
  1. KEPPRA [Suspect]
     Indication: CONVULSION
     Dosage: 500MG
     Route: 048
     Dates: start: 20110801, end: 20110928

REACTIONS (4)
  - SUICIDAL IDEATION [None]
  - BLINDNESS UNILATERAL [None]
  - DIPLOPIA [None]
  - CONVULSION [None]
